FAERS Safety Report 13514811 (Version 1)
Quarter: 2017Q2

REPORT INFORMATION
  Report Type: Spontaneous
  Country: US (occurrence: US)
  Receive Date: 20170504
  Receipt Date: 20170504
  Transmission Date: 20170830
  Serious: No
  Sender: FDA-Public Use
  Company Number: US-AKORN PHARMACEUTICALS-2016AKN00185

PATIENT
  Sex: Female

DRUGS (1)
  1. RIFAMPIN. [Suspect]
     Active Substance: RIFAMPIN
     Indication: LYME DISEASE

REACTIONS (1)
  - Neuropathy peripheral [Unknown]
